FAERS Safety Report 15553418 (Version 1)
Quarter: 2018Q4

REPORT INFORMATION
  Report Type: Report from Study
  Country: US (occurrence: US)
  Receive Date: 20181026
  Receipt Date: 20181026
  Transmission Date: 20190205
  Serious: Yes (Hospitalization)
  Sender: FDA-Public Use
  Company Number: US-ACADIA PHARMACEUTICALS INC.-ACA-2018-010603

PATIENT
  Age: 72 Year
  Sex: Female

DRUGS (4)
  1. SEROQUEL [Suspect]
     Active Substance: QUETIAPINE FUMARATE
     Indication: PRODUCT USED FOR UNKNOWN INDICATION
     Route: 065
  2. NUPLAZID [Suspect]
     Active Substance: PIMAVANSERIN TARTRATE
     Indication: PROGRESSIVE SUPRANUCLEAR PALSY
     Dosage: UNK
     Route: 065
  3. LEVODOPA [Concomitant]
     Active Substance: LEVODOPA
     Indication: PRODUCT USED FOR UNKNOWN INDICATION
  4. NUPLAZID [Suspect]
     Active Substance: PIMAVANSERIN TARTRATE
     Dosage: UNK
     Route: 065

REACTIONS (7)
  - Gait inability [Recovered/Resolved]
  - Dysstasia [Recovered/Resolved]
  - Insomnia [Recovered/Resolved]
  - Off label use [Unknown]
  - Delusion [Recovered/Resolved]
  - Abnormal behaviour [Recovered/Resolved]
  - Product dose omission [Unknown]
